FAERS Safety Report 9153825 (Version 1)
Quarter: 2013Q1

REPORT INFORMATION
  Report Type: Report from Study
  Country: CA (occurrence: CA)
  Receive Date: 20130311
  Receipt Date: 20130311
  Transmission Date: 20140127
  Serious: Yes (Hospitalization)
  Sender: FDA-Public Use
  Company Number: CA-JNJFOC-20130216972

PATIENT
  Age: 43 Year
  Sex: Female
  Weight: 46 kg

DRUGS (2)
  1. REMICADE [Suspect]
     Indication: COLITIS ULCERATIVE
     Route: 042
     Dates: start: 20130226
  2. REMICADE [Suspect]
     Indication: COLITIS ULCERATIVE
     Dosage: 2ND INDUCTION
     Route: 042

REACTIONS (5)
  - Infusion related reaction [Unknown]
  - Chest discomfort [Unknown]
  - Dyspnoea [Unknown]
  - Abdominal pain [Unknown]
  - Vomiting [Unknown]
